FAERS Safety Report 8617475-4 (Version None)
Quarter: 2012Q3

REPORT INFORMATION
  Report Type: 
  Country: None (occurrence: None)
  Receive Date: 20120824
  Receipt Date: 20111027
  Transmission Date: 20120928
  Serious: No
  Sender: FDA-Public Use
  Company Number: US-ASTRAZENECA-2011SE65039

PATIENT
  Age: 88 Year
  Sex: Male
  Weight: 83.9 kg

DRUGS (1)
  1. SYMBICORT [Suspect]
     Indication: PNEUMONIA
     Dosage: 160/4.5 MCG, TWO PUFFS BID (ONE IN THE MORNING AND ONE IN THE EVENING)
     Route: 055
     Dates: start: 20111001

REACTIONS (3)
  - OFF LABEL USE [None]
  - COUGH [None]
  - APHONIA [None]
